FAERS Safety Report 15274030 (Version 2)
Quarter: 2018Q3

REPORT INFORMATION
  Report Type: Spontaneous
  Country: US (occurrence: US)
  Receive Date: 20180814
  Receipt Date: 20180905
  Transmission Date: 20181010
  Serious: No
  Sender: FDA-Public Use
  Company Number: US-BIOGEN-2018BI00619018

PATIENT
  Age: 69 Year
  Sex: Female

DRUGS (1)
  1. PLEGRIDY [Suspect]
     Active Substance: PEGINTERFERON BETA-1A
     Indication: MULTIPLE SCLEROSIS
     Route: 058
     Dates: start: 20180510

REACTIONS (18)
  - Chills [Recovered/Resolved]
  - Lip swelling [Recovered/Resolved]
  - Fatigue [Recovered/Resolved]
  - Sleep talking [Recovered/Resolved]
  - Fall [Recovered/Resolved]
  - Eating disorder [Unknown]
  - Delirium [Recovered/Resolved]
  - Hyperhidrosis [Recovered/Resolved]
  - Urinary incontinence [Recovered/Resolved]
  - Cold sweat [Recovered/Resolved]
  - Pyrexia [Recovered/Resolved]
  - Hypoaesthesia oral [Recovered/Resolved]
  - Malaise [Recovered/Resolved]
  - Moaning [Recovered/Resolved]
  - Dehydration [Unknown]
  - Decreased appetite [Recovered/Resolved]
  - Memory impairment [Recovered/Resolved]
  - Feeling hot [Recovered/Resolved]

NARRATIVE: CASE EVENT DATE: 20180510
